FAERS Safety Report 6414443-8 (Version None)
Quarter: 2009Q4

REPORT INFORMATION
  Report Type: 
  Country: None (occurrence: None)
  Receive Date: 20091026
  Receipt Date: 20091013
  Transmission Date: 20100525
  Serious: Yes (Hospitalization)
  Sender: FDA-Public Use
  Company Number: PHHY2009GB43097

PATIENT
  Sex: Female

DRUGS (6)
  1. EXJADE [Suspect]
     Indication: SICKLE CELL ANAEMIA
     Dosage: UNK
     Dates: start: 20090806, end: 20090928
  2. EXJADE [Suspect]
     Indication: IRON OVERLOAD
  3. ACETAMINOPHEN [Concomitant]
     Dosage: UNK
  4. DESFERAL [Concomitant]
     Dosage: UNK
  5. DIHYDROCODEINE BITARTRATE INJ [Concomitant]
     Dosage: UNK
  6. PENICILLIN VK [Concomitant]
     Dosage: UNK

REACTIONS (7)
  - CHEST PAIN [None]
  - EMOTIONAL DISTRESS [None]
  - LOWER RESPIRATORY TRACT INFECTION [None]
  - MALAISE [None]
  - MUSCULOSKELETAL CHEST PAIN [None]
  - SICKLE CELL ANAEMIA WITH CRISIS [None]
  - TREATMENT NONCOMPLIANCE [None]
